FAERS Safety Report 7643395-8 (Version None)
Quarter: 2011Q3

REPORT INFORMATION
  Report Type: 
  Country: None (occurrence: None)
  Receive Date: 20110729
  Receipt Date: 20110721
  Transmission Date: 20111222
  Serious: Yes (Death, Other)
  Sender: FDA-Public Use
  Company Number: JP-CELGENEUS-087-50794-11060755

PATIENT
  Sex: Male

DRUGS (18)
  1. TAZIN [Concomitant]
     Dosage: 90 MILLIGRAM
     Route: 048
     Dates: start: 20110401, end: 20110512
  2. CINAL [Concomitant]
     Dosage: 3 GRAM
     Route: 048
     Dates: start: 20110401, end: 20110512
  3. MAGMITT [Concomitant]
     Dosage: 1.5 GRAM
     Route: 048
     Dates: start: 20110415, end: 20110512
  4. LEVOFLOXACIN [Concomitant]
     Dosage: 500 MILLIGRAM
     Route: 048
     Dates: start: 20110507, end: 20110509
  5. DORIPENEM MONOHYDRATE [Concomitant]
     Dosage: 1.5 MILLIGRAM
     Route: 041
     Dates: start: 20110425, end: 20110504
  6. PRIMPERAN TAB [Concomitant]
     Dosage: 2 DOSAGE FORMS
     Route: 041
     Dates: start: 20110429, end: 20110501
  7. TRANSAMIN [Concomitant]
     Dosage: 750 MILLIGRAM
     Route: 048
     Dates: start: 20110412, end: 20110512
  8. EXJADE [Concomitant]
     Dosage: 500 MILLIGRAM
     Route: 048
     Dates: start: 20110401, end: 20110512
  9. VIDAZA [Suspect]
     Indication: MYELODYSPLASTIC SYNDROME
     Dosage: 75 MILLIGRAM/SQ. METER
     Route: 058
     Dates: start: 20110412, end: 20110418
  10. TARGOCID [Concomitant]
     Dosage: 200 MILLIGRAM
     Route: 041
     Dates: start: 20110428, end: 20110504
  11. AMBISOME [Concomitant]
     Dosage: 100 MILLIGRAM
     Route: 041
     Dates: start: 20110502, end: 20110506
  12. PASIL [Concomitant]
     Dosage: 2000 MILLIGRAM
     Route: 041
     Dates: start: 20110512, end: 20110512
  13. OMEPRAZOLE [Concomitant]
     Dosage: 40 MILLIGRAM/SQ. METER
     Route: 058
     Dates: start: 20110512, end: 20110513
  14. MIYA BM [Concomitant]
     Dosage: 3 DOSAGE FORMS
     Route: 048
     Dates: start: 20110509, end: 20110512
  15. NEUTROGIN [Concomitant]
     Dosage: 250 MILLIGRAM
     Route: 041
     Dates: start: 20110425
  16. DEPAS [Concomitant]
     Dosage: .5 MILLIGRAM
     Route: 048
     Dates: start: 20110401, end: 20110512
  17. CLONAZEPAM [Concomitant]
     Dosage: 1 MILLIGRAM
     Route: 048
     Dates: start: 20110427, end: 20110428
  18. SHAKUYAKU-KANZO-TO [Concomitant]
     Dosage: 3 DOSAGE FORMS
     Route: 048
     Dates: start: 20110429, end: 20110512

REACTIONS (4)
  - WHITE BLOOD CELL COUNT DECREASED [None]
  - HICCUPS [None]
  - FEBRILE NEUTROPENIA [None]
  - SEPSIS [None]
